FAERS Safety Report 6968191-6 (Version None)
Quarter: 2010Q3

REPORT INFORMATION
  Report Type: 
  Country: None (occurrence: None)
  Receive Date: 20100907
  Receipt Date: 20100831
  Transmission Date: 20110219
  Serious: Yes (Death, Hospitalization, Other)
  Sender: FDA-Public Use
  Company Number: US-BAYER-201024825NA

PATIENT
  Age: 32 Year
  Sex: Female

DRUGS (60)
  1. FLUDARA [Suspect]
     Indication: ACUTE MYELOID LEUKAEMIA
     Dosage: X 4 DAYS
     Route: 042
     Dates: start: 20100415, end: 20100418
  2. NEUPOGEN [Suspect]
     Indication: ACUTE MYELOID LEUKAEMIA
     Dosage: X 6 DAYS
     Route: 058
     Dates: start: 20100412, end: 20100417
  3. PLERIXAFOR [Suspect]
     Indication: ACUTE MYELOID LEUKAEMIA
     Dosage: X 4 DAYS
     Route: 058
     Dates: start: 20100414, end: 20100417
  4. BUSULFAN [Suspect]
     Indication: ACUTE MYELOID LEUKAEMIA
     Dosage: X 4 DAYS
     Route: 042
     Dates: start: 20100415, end: 20100418
  5. ANTI-THYMOCYTE GLOBULIN NOS [Suspect]
     Indication: ACUTE MYELOID LEUKAEMIA
     Dosage: X 1 DAY
     Route: 042
     Dates: start: 20100418, end: 20100420
  6. ANTI-THYMOCYTE GLOBULIN NOS [Suspect]
     Dosage: X 1 DAY
     Route: 042
     Dates: start: 20100418, end: 20100420
  7. ANTI-THYMOCYTE GLOBULIN NOS [Suspect]
     Dosage: X 1 DAY
     Route: 042
     Dates: start: 20100418, end: 20100420
  8. ACETAMINOPHEN [Concomitant]
     Dosage: Q 4 HRS
     Route: 048
  9. ALBUMIN (HUMAN) [Concomitant]
     Dosage: TOTAL DAILY DOSE: 100 G
     Route: 042
  10. ATENOLOL [Concomitant]
     Indication: BLOOD PRESSURE ABNORMAL
     Dosage: TOTAL DAILY DOSE: 50 MG
     Route: 048
  11. ATOVAQUONE [Concomitant]
     Dosage: TOTAL DAILY DOSE: 1500 MG
     Route: 048
  12. BENZONATATE [Concomitant]
     Dosage: Q 8 HOURS
     Route: 048
  13. CASPOFUNGIN ACETATE [Concomitant]
     Dosage: TOTAL DAILY DOSE: 35 MG
     Route: 042
  14. CITALOPRAM HYDROBROMIDE [Concomitant]
     Indication: DEPRESSED MOOD
     Dosage: TOTAL DAILY DOSE: 20 MG
     Route: 048
  15. CLONAZEPAM [Concomitant]
     Indication: ANXIETY
     Dosage: UNIT DOSE: 0.5 MG
     Route: 048
  16. CLONAZEPAM [Concomitant]
     Dosage: Q 8 HOURS
     Route: 048
  17. CYCLOBENZAPRINE [Concomitant]
     Dosage: TID
     Route: 048
  18. DIPHENHYDRAMINE HCL [Concomitant]
     Dosage: SHORT INFUSION
     Route: 042
  19. FUROSEMIDE [Concomitant]
     Dosage: Q 20 HOURS
     Route: 042
  20. GABAPENTIN [Concomitant]
     Indication: NEURALGIA
     Dosage: TOTAL DAILY DOSE: 300 MG
     Route: 048
  21. GUAIFENESIN [Concomitant]
     Dosage: BID
     Route: 048
  22. HYDROCORTISONE [Concomitant]
     Dosage: EXTERNAL
     Route: 061
  23. HYDROCORTISONE [Concomitant]
     Dates: start: 20100701
  24. LEVALBUTEROL HCL [Concomitant]
     Dosage: ROUTINE MED
     Route: 055
  25. LOPERAMIDE [Concomitant]
     Indication: DIARRHOEA
     Dosage: TAKE 1-2 TABLETS AFTER EACH LOOSE STOOL. MAX 8 TABLETS PER DAY.
     Route: 048
  26. MEROPENEM [Concomitant]
     Dosage: TOTAL DAILY DOSE: 2 G
     Route: 042
  27. MORPHINE [Concomitant]
     Dosage: SHORT INFUSION - Q 4 HOURS VIA PUMP
     Route: 042
  28. NYSTATIN [Concomitant]
     Dosage: AS USED: 100,000 U
  29. ONDANSETRON [Concomitant]
     Indication: NAUSEA
     Dosage: SHORT INFUSION - Q 6 HOURS
     Route: 042
  30. ONDANSETRON [Concomitant]
     Dosage: EVERY 8 HOURS AS NEEDED
     Route: 048
  31. OXYCODONE [Concomitant]
     Indication: PAIN
     Dosage: 1-2 TABLET Q 4 HOURS AS NEEDED
     Route: 048
  32. OXYCODONE [Concomitant]
     Dosage: Q 4 HOURS
     Route: 048
  33. POTASSIUM CHLORIDE [Concomitant]
     Dosage: SLIDING SCALE
     Route: 042
  34. POTASSIUM CHLORIDE [Concomitant]
     Dosage: SLIDING SCALE
     Route: 042
  35. POTASSIUM CHLORIDE [Concomitant]
     Dosage: SLIDING SCALE
     Route: 042
  36. SEVELAMER HCL [Concomitant]
     Dosage: TOTAL DAILY DOSE: 2400 MG
     Route: 048
  37. SODIUM CHLORIDE [Concomitant]
     Dosage: SHORT INFUSION - Q 6 HOURS
     Route: 042
  38. SODIUM CHLORIDE [Concomitant]
     Dosage: SHORT INFUSION - AS NEEDED
     Route: 042
  39. SODIUM CHLORIDE [Concomitant]
     Dosage: SHORT INFUSION - Q 4 HOURS VIA PUMP
     Route: 042
  40. SODIUM CHLORIDE [Concomitant]
     Dosage: TOTAL DAILY DOSE: 1000 ML
     Route: 042
  41. SODIUM CHLORIDE [Concomitant]
     Dosage: UD
     Route: 048
  42. SODIUM CITRATE + CITRIC ACID [Concomitant]
     Dosage: TOTAL DAILY DOSE: 60 ML
     Route: 048
  43. SPIRONOLACTONE [Concomitant]
     Dosage: TOTAL DAILY DOSE: 150 MG
     Route: 048
  44. SUCRALFATE [Concomitant]
     Indication: STOMATITIS
     Dosage: Q 6 HOURS
     Route: 048
  45. SUCRALFATE [Concomitant]
     Dosage: SWISH AND SPIT EVERY 6 HOURS AS NEEDED
  46. SUMATRIPTAN [Concomitant]
     Indication: HEADACHE
     Dosage: TOTAL DAILY DOSE: 50 MG
     Route: 048
  47. TACROLIMUS [Concomitant]
     Indication: PROPHYLAXIS AGAINST GRAFT VERSUS HOST DISEASE
     Dosage: TOTAL DAILY DOSE: 0.2 MG
     Route: 042
  48. TACROLIMUS [Concomitant]
     Dosage: TOTAL DAILY DOSE: 2 MG
     Route: 048
  49. URSODIOL [Concomitant]
     Indication: LIVER DISORDER
     Dosage: TOTAL DAILY DOSE: 900 MG
     Route: 048
  50. VALACYCLOVIR HYDROCHLORIDE [Concomitant]
     Indication: INFECTION PROPHYLAXIS
     Dosage: TOTAL DAILY DOSE: 500 MG
     Route: 048
  51. XYLOXYLIN [Concomitant]
     Indication: STOMATITIS
     Dosage: Q 4 HOURS
     Route: 048
  52. XYLOXYLIN [Concomitant]
     Dosage: SWISH AND SPIT EVERY 8 HOURS AS NEEDED
  53. KLOR-CON [Concomitant]
     Indication: MINERAL SUPPLEMENTATION
     Dosage: TOTAL DAILY DOSE: 40 MEQ
     Route: 048
  54. MAGNESIUM OXIDE [Concomitant]
     Indication: MINERAL SUPPLEMENTATION
     Dosage: TOTAL DAILY DOSE: 1000 MG
     Route: 048
  55. NEXIUM [Concomitant]
     Indication: GASTRIC PH DECREASED
     Dosage: TOTAL DAILY DOSE: 40 MG
     Route: 048
  56. OXYCONTIN [Concomitant]
     Indication: PAIN
     Dosage: TOTAL DAILY DOSE: 60 MG  UNIT DOSE: 10 MG
  57. HEPARIN [Concomitant]
     Indication: CENTRAL VENOUS CATHETERISATION
     Dosage: TOTAL DAILY DOSE: 200 U
     Route: 042
  58. NOXAFIL [Concomitant]
     Indication: ANTIFUNGAL TREATMENT
     Dosage: TOTAL DAILY DOSE: 20 ML  UNIT DOSE: 40 MG/ML
  59. VITAMIN D [Concomitant]
     Indication: MEDICAL DIET
     Dosage: TAKE ON THURSDAYS
     Route: 048
  60. ZYRTEC [Concomitant]
     Indication: HYPERSENSITIVITY
     Dosage: TOTAL DAILY DOSE: 10 MG  UNIT DOSE: 10 MG
     Route: 048

REACTIONS (12)
  - ACUTE MYOCARDIAL INFARCTION [None]
  - ASCITES [None]
  - DYSPNOEA [None]
  - MUCOSAL INFLAMMATION [None]
  - PLEURAL EFFUSION [None]
  - PNEUMONIA [None]
  - PYREXIA [None]
  - RENAL FAILURE [None]
  - RESPIRATORY FAILURE [None]
  - SEPTIC SHOCK [None]
  - STOMATITIS [None]
  - VENOOCCLUSIVE LIVER DISEASE [None]
